FAERS Safety Report 4349714-2 (Version None)
Quarter: 2004Q1

REPORT INFORMATION
  Report Type: 
  Country: None (occurrence: None)
  Receive Date: 20040329
  Receipt Date: 20040126
  Transmission Date: 20041129
  Serious: No
  Sender: FDA-Public Use
  Company Number: USA040157520

PATIENT
  Age: 7 Year
  Sex: Male
  Weight: 47 kg

DRUGS (1)
  1. STRATTERA [Suspect]
     Indication: EMOTIONAL DISORDER
     Dosage: 25 MG/DAY
     Dates: start: 20040123, end: 20040125

REACTIONS (3)
  - MYDRIASIS [None]
  - PRURITUS [None]
  - PYREXIA [None]
